FAERS Safety Report 5304543-8 (Version None)
Quarter: 2007Q2

REPORT INFORMATION
  Report Type: 
  Country: None (occurrence: None)
  Receive Date: 20070417
  Receipt Date: 20070417
  Transmission Date: 20071010
  Serious: Yes (Other)
  Sender: FDA-Public Use
  Company Number: None

PATIENT
  Age: 40 Year
  Sex: Female
  Weight: 103.8737 kg

DRUGS (6)
  1. ZOSYN [Suspect]
     Indication: ENTEROCOCCAL INFECTION
     Dosage: 4.5 GM Q  6H IV
     Route: 042
     Dates: start: 20070208, end: 20070226
  2. ZOSYN [Suspect]
     Indication: FUNGUS BODY FLUID IDENTIFIED
     Dosage: 4.5 GM Q  6H IV
     Route: 042
     Dates: start: 20070208, end: 20070226
  3. ZOSYN [Suspect]
     Indication: FUNGUS SPUTUM TEST POSITIVE
     Dosage: 4.5 GM Q  6H IV
     Route: 042
     Dates: start: 20070208, end: 20070226
  4. CANCIDAS [Suspect]
     Indication: BACTERIA SPUTUM IDENTIFIED
     Dosage: 70MGX 1 50MG QD IV
     Route: 042
     Dates: start: 20070222, end: 20070228
  5. CANCIDAS [Suspect]
     Indication: ENTEROCOCCAL INFECTION
     Dosage: 70MGX 1 50MG QD IV
     Route: 042
     Dates: start: 20070222, end: 20070228
  6. CANCIDAS [Suspect]
     Indication: FUNGUS SPUTUM TEST POSITIVE
     Dosage: 70MGX 1 50MG QD IV
     Route: 042
     Dates: start: 20070222, end: 20070228

REACTIONS (1)
  - TOXIC EPIDERMAL NECROLYSIS [None]
